FAERS Safety Report 5367030-7 (Version None)
Quarter: 2007Q2

REPORT INFORMATION
  Report Type: 
  Country: None (occurrence: None)
  Receive Date: 20070622
  Receipt Date: 20070619
  Transmission Date: 20071010
  Serious: Yes (Other)
  Sender: FDA-Public Use
  Company Number: A0656920A

PATIENT
  Age: 46 Year
  Sex: Female

DRUGS (5)
  1. BUPROPION HCL [Suspect]
     Indication: DEPRESSION
     Dosage: 400MG TWICE PER DAY
     Route: 048
     Dates: start: 19980101
  2. WELLBUTRIN [Suspect]
     Dosage: 400MG TWICE PER DAY
     Route: 048
  3. LAMICTAL [Concomitant]
  4. KLONOPIN [Concomitant]
  5. VOLTAREN [Concomitant]

REACTIONS (25)
  - ABDOMINAL DISCOMFORT [None]
  - ABDOMINAL PAIN [None]
  - ANXIETY [None]
  - CHILLS [None]
  - CLUMSINESS [None]
  - CONFUSIONAL STATE [None]
  - CRYING [None]
  - DEMENTIA ALZHEIMER'S TYPE [None]
  - DISCOMFORT [None]
  - DISORIENTATION [None]
  - DIZZINESS [None]
  - DRUG DISPENSING ERROR [None]
  - DRUG WITHDRAWAL SYNDROME [None]
  - DRY MOUTH [None]
  - FALL [None]
  - FATIGUE [None]
  - HOT FLUSH [None]
  - HYPERHIDROSIS [None]
  - INSOMNIA [None]
  - MEMORY IMPAIRMENT [None]
  - NIGHT SWEATS [None]
  - OVERDOSE [None]
  - POLLAKIURIA [None]
  - SKIN ODOUR ABNORMAL [None]
  - VISION BLURRED [None]
